FAERS Safety Report 5588036-9 (Version None)
Quarter: 2008Q1

REPORT INFORMATION
  Report Type: 
  Country: None (occurrence: None)
  Receive Date: 20080111
  Receipt Date: 20071228
  Transmission Date: 20080703
  Serious: Yes (Hospitalization, Other)
  Sender: FDA-Public Use
  Company Number: AU-PFIZER INC-2007090543

PATIENT
  Sex: Male

DRUGS (3)
  1. ZELDOX (CAPSULES) [Suspect]
     Indication: SCHIZOPHRENIA
     Route: 048
     Dates: start: 20070831, end: 20070922
  2. OLANZAPINE [Suspect]
  3. BENZTROPINE MESYLATE [Concomitant]
     Route: 048

REACTIONS (12)
  - AGITATED DEPRESSION [None]
  - BLOOD PROLACTIN INCREASED [None]
  - DELUSION [None]
  - EXTRAPYRAMIDAL DISORDER [None]
  - EYE DISORDER [None]
  - HALLUCINATION, AUDITORY [None]
  - HYPERLIPIDAEMIA [None]
  - HYPERTENSION [None]
  - LIPOMA [None]
  - NEUROLEPTIC MALIGNANT SYNDROME [None]
  - SINUS TACHYCARDIA [None]
  - SUICIDAL IDEATION [None]
